FAERS Safety Report 7481962-5 (Version None)
Quarter: 2011Q2

REPORT INFORMATION
  Report Type: 
  Country: None (occurrence: None)
  Receive Date: 20110516
  Receipt Date: 20110511
  Transmission Date: 20111010
  Serious: Yes (Hospitalization)
  Sender: FDA-Public Use
  Company Number: US-MERCK-1105USA01999

PATIENT
  Age: 88 Year
  Sex: Female

DRUGS (2)
  1. FOSAMAX [Suspect]
     Indication: OSTEOPOROSIS
     Route: 048
     Dates: end: 20110511
  2. FOSAMAX [Suspect]
     Route: 048

REACTIONS (2)
  - ADVERSE EVENT [None]
  - GASTROINTESTINAL DISORDER [None]
